FAERS Safety Report 21366215 (Version 2)
Quarter: 2022Q3

REPORT INFORMATION
  Report Type: Spontaneous
  Country: TR (occurrence: TR)
  Receive Date: 20220922
  Receipt Date: 20220930
  Transmission Date: 20221027
  Serious: Yes (Hospitalization, Other)
  Sender: FDA-Public Use
  Company Number: TR-GILEAD-2022-0598502

PATIENT
  Age: 71 Year
  Sex: Female

DRUGS (1)
  1. VIREAD [Suspect]
     Active Substance: TENOFOVIR DISOPROXIL FUMARATE
     Indication: Chronic hepatitis B
     Dosage: UNK
     Route: 065

REACTIONS (2)
  - Renal tubular acidosis [Recovered/Resolved]
  - Fanconi syndrome acquired [Recovered/Resolved]
